FAERS Safety Report 7971202-2 (Version None)
Quarter: 2011Q4

REPORT INFORMATION
  Report Type: 
  Country: None (occurrence: None)
  Receive Date: 20111212
  Receipt Date: 20111207
  Transmission Date: 20120403
  Serious: Yes (Death, Hospitalization)
  Sender: FDA-Public Use
  Company Number: PHHY2011MX74857

PATIENT
  Age: 73 Year
  Sex: Female

DRUGS (1)
  1. ZOLEDRONOC ACID [Suspect]
     Indication: OSTEOPOROSIS
     Dosage: 5MG/100 ML ONCE PER YEAR
     Route: 042

REACTIONS (4)
  - CARDIAC ARREST [None]
  - INFARCTION [None]
  - SYNCOPE [None]
  - UNRESPONSIVE TO STIMULI [None]
